FAERS Safety Report 10101197 (Version 1)
Quarter: 2014Q2

REPORT INFORMATION
  Report Type: Spontaneous
  Country: US (occurrence: US)
  Receive Date: 20140424
  Receipt Date: 20140424
  Transmission Date: 20141212
  Serious: No
  Sender: FDA-Public Use
  Company Number: US-B.I. PHARMACEUTICALS,INC./RIDGEFIELD-2014-BI-17117BP

PATIENT
  Sex: Female

DRUGS (4)
  1. TELMISARTAN [Suspect]
     Indication: PRODUCT USED FOR UNKNOWN INDICATION
     Route: 065
  2. OXYCODONE [Concomitant]
     Indication: PAIN
     Route: 065
  3. OXYCODONE [Concomitant]
     Indication: SURGERY
  4. OXYCODONE [Concomitant]
     Indication: HIP ARTHROPLASTY

REACTIONS (6)
  - Dysphonia [Unknown]
  - Peripheral swelling [Unknown]
  - Joint swelling [Unknown]
  - Pruritus [Unknown]
  - Pruritus [Unknown]
  - Back pain [Unknown]
